FAERS Safety Report 19682308 (Version 1)
Quarter: 2021Q3

REPORT INFORMATION
  Report Type: Spontaneous
  Country: ES (occurrence: ES)
  Receive Date: 20210810
  Receipt Date: 20210810
  Transmission Date: 20211014
  Serious: Yes (Other)
  Sender: FDA-Public Use
  Company Number: ES-MYLANLABS-2021M1049067

PATIENT
  Age: 35 Year
  Sex: Male

DRUGS (8)
  1. FLUDARABINE [Suspect]
     Active Substance: FLUDARABINE PHOSPHATE
     Indication: BONE MARROW CONDITIONING REGIMEN
     Dosage: UNK
     Route: 065
  2. URSODEOXYCHOLIC ACID [Suspect]
     Active Substance: URSODIOL
     Indication: VENOOCCLUSIVE DISEASE
     Dosage: UNK
  3. MYCOPHENOLATE MOFETIL. [Suspect]
     Active Substance: MYCOPHENOLATE MOFETIL
     Indication: PROPHYLAXIS AGAINST GRAFT VERSUS HOST DISEASE
     Dosage: FROM DAY PLUS 5 POST?TRANSPLANTATION
     Route: 065
  4. MESNA. [Suspect]
     Active Substance: MESNA
     Indication: PROPHYLAXIS AGAINST GRAFT VERSUS HOST DISEASE
     Dosage: UNK
     Route: 065
  5. URSODEOXYCHOLIC ACID [Suspect]
     Active Substance: URSODIOL
     Dosage: UNK
  6. CYCLOPHOSPHAMIDE. [Suspect]
     Active Substance: CYCLOPHOSPHAMIDE
     Indication: PROPHYLAXIS AGAINST GRAFT VERSUS HOST DISEASE
     Dosage: 50 MG/KG, QD (DAYS PLUS 3 AND PLUS 4)
     Route: 065
  7. URSODEOXYCHOLIC ACID [Suspect]
     Active Substance: URSODIOL
     Indication: PROPHYLAXIS
     Dosage: UNK
  8. BUSULFAN. [Suspect]
     Active Substance: BUSULFAN
     Indication: BONE MARROW CONDITIONING REGIMEN
     Dosage: 3.2 MG/KG, QD
     Route: 042

REACTIONS (1)
  - Venoocclusive disease [Recovered/Resolved]
